FAERS Safety Report 5627404-3 (Version None)
Quarter: 2008Q1

REPORT INFORMATION
  Report Type: 
  Country: None (occurrence: None)
  Receive Date: 20080215
  Receipt Date: 20080213
  Transmission Date: 20080703
  Serious: Yes (Death)
  Sender: FDA-Public Use
  Company Number: JP-NOVOPROD-272109

PATIENT

DRUGS (2)
  1. NOVOSEVEN [Suspect]
     Indication: HAEMORRHAGE
     Dosage: 4.8 MG, QD
     Route: 042
     Dates: start: 20071210, end: 20080130
  2. KALETRA                            /01399701/ [Concomitant]
     Indication: HIV INFECTION
     Dosage: 4 CAPS, QD
     Route: 048
     Dates: start: 20071210

REACTIONS (1)
  - CEREBRAL HAEMORRHAGE [None]
